FAERS Safety Report 7102842-0 (Version None)
Quarter: 2010Q4

REPORT INFORMATION
  Report Type: 
  Country: None (occurrence: None)
  Receive Date: 20101115
  Receipt Date: 20101105
  Transmission Date: 20110411
  Serious: Yes (Other)
  Sender: FDA-Public Use
  Company Number: JP-JNJFOC-20101007569

PATIENT

DRUGS (2)
  1. LOPEMIN [Suspect]
     Indication: DIARRHOEA
     Route: 048
  2. HYPNOTICS [Concomitant]

REACTIONS (2)
  - DIARRHOEA [None]
  - DRUG INEFFECTIVE [None]
